FAERS Safety Report 9311943 (Version 2)
Quarter: 2013Q3

REPORT INFORMATION
  Report Type: Spontaneous
  Country: BR (occurrence: BR)
  Receive Date: 20130528
  Receipt Date: 20130802
  Transmission Date: 20140515
  Serious: Yes (Other)
  Sender: FDA-Public Use
  Company Number: PHHY2013BR052965

PATIENT
  Age: 9 Year
  Sex: Male

DRUGS (2)
  1. RITALIN LA [Suspect]
     Indication: ATTENTION DEFICIT/HYPERACTIVITY DISORDER
     Dosage: 1 DF, QD
     Route: 048
     Dates: start: 2010, end: 201210
  2. TYLENOL [Concomitant]
     Indication: HEADACHE
     Dosage: 20 DRP, UNK
     Route: 048

REACTIONS (12)
  - Suicidal ideation [Recovered/Resolved]
  - Depression [Recovered/Resolved]
  - Nightmare [Recovered/Resolved]
  - Fear [Recovered/Resolved]
  - Sneezing [Recovered/Resolved]
  - Hyperphagia [Recovered/Resolved]
  - Abnormal behaviour [Recovered/Resolved]
  - Abdominal pain [Recovered/Resolved]
  - Decreased appetite [Recovered/Resolved]
  - Sleep disorder [Recovered/Resolved]
  - Insomnia [Recovered/Resolved]
  - Headache [Recovered/Resolved]
